FAERS Safety Report 15855037 (Version 1)
Quarter: 2019Q1

REPORT INFORMATION
  Report Type: Spontaneous
  Country: US (occurrence: US)
  Receive Date: 20190121
  Receipt Date: 20190121
  Transmission Date: 20190417
  Serious: No
  Sender: FDA-Public Use
  Company Number: None

PATIENT
  Age: 27 Year
  Sex: Female
  Weight: 68.04 kg

DRUGS (1)
  1. KYLEENA [Suspect]
     Active Substance: LEVONORGESTREL

REACTIONS (9)
  - Vaginal haemorrhage [None]
  - Swelling face [None]
  - Breast swelling [None]
  - Abdominal distension [None]
  - Vulvovaginal pain [None]
  - Screaming [None]
  - Oligomenorrhoea [None]
  - Swelling [None]
  - Complication associated with device [None]
